FAERS Safety Report 25300842 (Version 2)
Quarter: 2025Q2

REPORT INFORMATION
  Report Type: Report from Study
  Country: CA (occurrence: CA)
  Receive Date: 20250512
  Receipt Date: 20250514
  Transmission Date: 20250716
  Serious: Yes (Hospitalization)
  Sender: BAUSCH AND LOMB
  Company Number: CA-BAUSCH-BL-2024-015252

PATIENT
  Age: 46 Year
  Sex: Male

DRUGS (2)
  1. SILIQ [Suspect]
     Active Substance: BRODALUMAB
     Indication: Psoriasis
     Dosage: 210 MG / 1.5 ML, WEEK 0-2
     Route: 058
     Dates: start: 20240924, end: 20241008
  2. SILIQ [Suspect]
     Active Substance: BRODALUMAB
     Dosage: 210 MG / 1.5 ML, Q2 WEEKS ?TREATMENT ON HOLD PENDING PHYSICIAN CONFIRMATION
     Route: 058
     Dates: start: 202410, end: 20250423

REACTIONS (8)
  - Muscular weakness [Recovering/Resolving]
  - Myalgia [Not Recovered/Not Resolved]
  - Fear of injection [Not Recovered/Not Resolved]
  - Blood pressure increased [Unknown]
  - Abdominal distension [Recovering/Resolving]
  - Flatulence [Recovering/Resolving]
  - Decreased appetite [Not Recovered/Not Resolved]
  - Patient dissatisfaction with treatment [Unknown]

NARRATIVE: CASE EVENT DATE: 20240101
